FAERS Safety Report 4791477-0 (Version None)
Quarter: 2005Q4

REPORT INFORMATION
  Report Type: 
  Country: None (occurrence: None)
  Receive Date: 20051007
  Receipt Date: 20040914
  Transmission Date: 20060501
  Serious: No
  Sender: FDA-Public Use
  Company Number: US-BRISTOL-MYERS SQUIBB COMPANY-12701223

PATIENT
  Age: 41 Year
  Sex: Male
  Weight: 90 kg

DRUGS (1)
  1. AVAPRO [Suspect]
     Indication: HYPERTENSION
     Dosage: DECREASED TO 75 MILLIGRAMS ABOUT A MONTH AGO.
     Route: 048

REACTIONS (2)
  - EAR DISCOMFORT [None]
  - VISUAL DISTURBANCE [None]
